FAERS Safety Report 8241352-4 (Version None)
Quarter: 2012Q1

REPORT INFORMATION
  Report Type: 
  Country: None (occurrence: None)
  Receive Date: 20120328
  Receipt Date: 20120323
  Transmission Date: 20120608
  Serious: Yes (Hospitalization, Other)
  Sender: FDA-Public Use
  Company Number: GXKR2012DE001283

PATIENT
  Sex: Female

DRUGS (1)
  1. CETIRIZIN HEXAL [Suspect]
     Indication: HOUSE DUST ALLERGY
     Dosage: 10 MG, QD
     Route: 048
     Dates: start: 20090101

REACTIONS (5)
  - CHEST DISCOMFORT [None]
  - ATRIOVENTRICULAR BLOCK [None]
  - PULSE ABNORMAL [None]
  - CONDITION AGGRAVATED [None]
  - EXTRASYSTOLES [None]
